FAERS Safety Report 25811182 (Version 1)
Quarter: 2025Q3

REPORT INFORMATION
  Report Type: Report from Study
  Country: CN (occurrence: CN)
  Receive Date: 20250917
  Receipt Date: 20250917
  Transmission Date: 20251021
  Serious: Yes (Other)
  Sender: NOVARTIS
  Company Number: CN-002147023-NVSC2025CN090488

PATIENT

DRUGS (1)
  1. LEQVIO [Suspect]
     Active Substance: INCLISIRAN SODIUM
     Indication: Hyperlipidaemia
     Route: 058
     Dates: start: 20250529, end: 20250529

REACTIONS (3)
  - Coronary artery occlusion [Unknown]
  - Injection site discolouration [Unknown]
  - Lipoprotein (a) increased [Unknown]

NARRATIVE: CASE EVENT DATE: 20250501
